FAERS Safety Report 15353592 (Version 1)
Quarter: 2018Q3

REPORT INFORMATION
  Report Type: Spontaneous
  Country: US (occurrence: US)
  Receive Date: 20180905
  Receipt Date: 20180905
  Transmission Date: 20181010
  Serious: Yes (Other)
  Sender: FDA-Public Use
  Company Number: US-TAKEDA-2018TUS026195

PATIENT

DRUGS (29)
  1. NEXIUM [Suspect]
     Active Substance: ESOMEPRAZOLE MAGNESIUM
     Dosage: 40 MG, UNK
     Route: 048
     Dates: start: 200708, end: 201006
  2. LYRICA [Concomitant]
     Active Substance: PREGABALIN
     Indication: PAIN
     Dosage: UNK
     Dates: start: 2001
  3. PREVACID [Suspect]
     Active Substance: LANSOPRAZOLE
     Indication: GASTROOESOPHAGEAL REFLUX DISEASE
     Dosage: UNK
     Route: 048
     Dates: start: 2001, end: 2007
  4. PRILOSEC [Suspect]
     Active Substance: OMEPRAZOLE MAGNESIUM
     Indication: GASTROOESOPHAGEAL REFLUX DISEASE
     Dosage: UNK
     Route: 048
     Dates: start: 2001, end: 2007
  5. PROMETHAZINE [Concomitant]
     Active Substance: PROMETHAZINE\PROMETHAZINE HYDROCHLORIDE
     Indication: NAUSEA
     Dosage: UNK
     Dates: start: 2012
  6. METOPROLOL. [Concomitant]
     Active Substance: METOPROLOL
     Indication: HYPERTENSION
     Dosage: UNK
     Dates: start: 2013
  7. NAPROXEN. [Concomitant]
     Active Substance: NAPROXEN
     Indication: PAIN
  8. OMEPRAZOLE AND SODIUM BICARBONATE [Suspect]
     Active Substance: OMEPRAZOLE\SODIUM BICARBONATE
     Indication: PRODUCT USED FOR UNKNOWN INDICATION
     Dosage: UNK
     Route: 048
  9. LISINOPRIL. [Concomitant]
     Active Substance: LISINOPRIL
     Indication: HYPERTENSION
     Dosage: UNK
     Dates: start: 2011
  10. IBUPROFEN. [Concomitant]
     Active Substance: IBUPROFEN
     Indication: PAIN
     Dosage: UNK
     Dates: start: 2015, end: 2018
  11. IBUPROFEN. [Concomitant]
     Active Substance: IBUPROFEN
     Indication: MIGRAINE
  12. NEXIUM [Suspect]
     Active Substance: ESOMEPRAZOLE MAGNESIUM
     Indication: GASTROOESOPHAGEAL REFLUX DISEASE
     Dosage: UNK
     Route: 048
     Dates: start: 2001, end: 2007
  13. OMEPRAZOLE. [Suspect]
     Active Substance: OMEPRAZOLE
     Indication: GASTROOESOPHAGEAL REFLUX DISEASE
     Dosage: 40 MG, UNK
     Route: 048
     Dates: start: 201009, end: 201207
  14. LEVOTHYROXINE. [Concomitant]
     Active Substance: LEVOTHYROXINE
     Indication: THYROID HORMONES DECREASED
     Dosage: UNK
     Dates: start: 2001
  15. SAVELLA [Concomitant]
     Active Substance: MILNACIPRAN HYDROCHLORIDE
     Indication: DEPRESSION
     Dosage: UNK
     Dates: start: 200504, end: 201601
  16. VITAMIN D                          /00107901/ [Concomitant]
     Active Substance: ERGOCALCIFEROL
     Indication: GENERAL PHYSICAL HEALTH DETERIORATION
     Dosage: UNK
     Dates: start: 2016, end: 2018
  17. GABAPENTIN. [Concomitant]
     Active Substance: GABAPENTIN
     Indication: NEUROPATHY PERIPHERAL
     Dosage: UNK
     Dates: start: 2001
  18. PREVACID 24 HR [Suspect]
     Active Substance: LANSOPRAZOLE
     Indication: PRODUCT USED FOR UNKNOWN INDICATION
     Dosage: UNK
     Route: 048
  19. POTASSIUM [Concomitant]
     Active Substance: POTASSIUM
     Dosage: UNK
     Dates: start: 2018
  20. TOPIRAMATE. [Concomitant]
     Active Substance: TOPIRAMATE
     Indication: MIGRAINE
     Dosage: UNK
     Dates: start: 2011
  21. AMLODIPINE [Concomitant]
     Active Substance: AMLODIPINE BESYLATE
     Indication: HYPERTENSION
     Dosage: UNK
     Dates: start: 2017
  22. IBUPROFEN. [Concomitant]
     Active Substance: IBUPROFEN
     Indication: INFLAMMATION
  23. PEPCID                             /00305201/ [Concomitant]
     Active Substance: ALUMINUM HYDROXIDE\MAGNESIUM CARBONATE
  24. PEPCID COMPLETE                    /00706001/ [Concomitant]
     Dosage: UNK
  25. POTASSIUM [Concomitant]
     Active Substance: POTASSIUM
     Indication: HYPOKALAEMIA
     Dosage: UNK
     Dates: start: 2008
  26. PEPCID AC [Concomitant]
     Active Substance: FAMOTIDINE
     Dosage: UNK
  27. RANITIDINE. [Concomitant]
     Active Substance: RANITIDINE
     Dosage: UNK
     Dates: start: 2015
  28. OMEPRAZOLE. [Suspect]
     Active Substance: OMEPRAZOLE
     Dosage: UNK
     Route: 048
     Dates: start: 201507
  29. NAPROXEN. [Concomitant]
     Active Substance: NAPROXEN
     Indication: SWELLING
     Dosage: UNK
     Dates: start: 201609

REACTIONS (2)
  - Renal failure [Not Recovered/Not Resolved]
  - Chronic kidney disease [Not Recovered/Not Resolved]

NARRATIVE: CASE EVENT DATE: 2007
